FAERS Safety Report 11508230 (Version 1)
Quarter: 2015Q3

REPORT INFORMATION
  Report Type: Spontaneous
  Country: US (occurrence: US)
  Receive Date: 20150903
  Receipt Date: 20150903
  Transmission Date: 20151125
  Serious: No
  Sender: FDA-Public Use
  Company Number: US-ELI_LILLY_AND_COMPANY-US200911007246

PATIENT
  Sex: Female

DRUGS (5)
  1. SYMLIN [Concomitant]
     Active Substance: PRAMLINTIDE ACETATE
     Dosage: 60 U, 3/D
     Dates: start: 2003
  2. HUMALOG MIX50/50 [Suspect]
     Active Substance: INSULIN LISPRO
     Dosage: 32 U, EACH MORNING
     Dates: start: 2005
  3. HUMALOG MIX50/50 [Suspect]
     Active Substance: INSULIN LISPRO
     Dosage: 42 U, UNK
     Dates: start: 2005
  4. METFORMIN [Concomitant]
     Active Substance: METFORMIN HYDROCHLORIDE
     Dosage: 500 MG, 2/D
     Dates: start: 2003
  5. HUMALOG MIX50/50 [Suspect]
     Active Substance: INSULIN LISPRO
     Dosage: 52 U, EACH EVENING
     Dates: start: 2005

REACTIONS (3)
  - Blood glucose decreased [Not Recovered/Not Resolved]
  - Poor quality drug administered [Unknown]
  - Blood glucose increased [Not Recovered/Not Resolved]

NARRATIVE: CASE EVENT DATE: 200911
